FAERS Safety Report 16355739 (Version 1)
Quarter: 2019Q2

REPORT INFORMATION
  Report Type: Spontaneous
  Country: BR (occurrence: BR)
  Receive Date: 20190525
  Receipt Date: 20190525
  Transmission Date: 20190711
  Serious: Yes (Hospitalization)
  Sender: FDA-Public Use
  Company Number: BR-UCBSA-2019021376

PATIENT
  Age: 9 Year
  Sex: Female
  Weight: 26 kg

DRUGS (5)
  1. KEPPRA [Suspect]
     Active Substance: LEVETIRACETAM
     Dosage: 375 MG IN THE MORNING ONCE DAILY
     Dates: end: 201904
  2. GARDENAL [Concomitant]
     Active Substance: PHENOBARBITAL
     Indication: EPILEPSY
     Dosage: 100 MILLIGRAM, ONCE DAILY (QD)
     Route: 048
     Dates: start: 2012
  3. SABRIL [Concomitant]
     Active Substance: VIGABATRIN
     Indication: EPILEPSY
     Dosage: 2 TABLETS ONCE A DAY AT NIGHT
     Route: 048
     Dates: start: 201808
  4. VIMPAT [Suspect]
     Active Substance: LACOSAMIDE
     Indication: EPILEPSY
     Dosage: 50 MILLIGRAM, 2X/DAY (BID)
     Route: 048
     Dates: start: 201904
  5. KEPPRA [Suspect]
     Active Substance: LEVETIRACETAM
     Indication: EPILEPSY
     Dosage: 375 MILLIGRAM, 2X/DAY (BID)
     Route: 048
     Dates: start: 2015

REACTIONS (4)
  - Insomnia [Recovered/Resolved]
  - Sinusitis [Not Recovered/Not Resolved]
  - Muscle spasms [Recovered/Resolved]
  - Off label use [Unknown]

NARRATIVE: CASE EVENT DATE: 20190308
